FAERS Safety Report 11358686 (Version 1)
Quarter: 2015Q3

REPORT INFORMATION
  Report Type: Spontaneous
  Country: US (occurrence: US)
  Receive Date: 20150803
  Receipt Date: 20150803
  Transmission Date: 20151125
  Serious: Yes (Death)
  Sender: FDA-Public Use
  Company Number: US-ELI_LILLY_AND_COMPANY-US201106004424

PATIENT

DRUGS (2)
  1. ATIVAN [Concomitant]
     Active Substance: LORAZEPAM
     Route: 042
  2. ZYPREXA INTRAMUSCULAR [Suspect]
     Active Substance: OLANZAPINE
     Route: 030

REACTIONS (1)
  - Sudden death [Fatal]
